FAERS Safety Report 20750167 (Version 1)
Quarter: 2022Q2

REPORT INFORMATION
  Report Type: Spontaneous
  Country: US (occurrence: US)
  Receive Date: 20220426
  Receipt Date: 20220426
  Transmission Date: 20220721
  Serious: No
  Sender: FDA-Public Use
  Company Number: US-TEVA-2022-US-2023694

PATIENT
  Age: 14 Year
  Sex: Male

DRUGS (1)
  1. BLEOMYCIN [Suspect]
     Active Substance: BLEOMYCIN SULFATE
     Indication: Arteriovenous malformation
     Dosage: DIRECT PUNCTURE SCLEROTHERAPY
     Route: 026

REACTIONS (1)
  - Skin hyperpigmentation [Not Recovered/Not Resolved]
